FAERS Safety Report 18609493 (Version 2)
Quarter: 2020Q4

REPORT INFORMATION
  Report Type: Spontaneous
  Country: DE (occurrence: DE)
  Receive Date: 20201214
  Receipt Date: 20201218
  Transmission Date: 20210114
  Serious: Yes (Hospitalization, Other)
  Sender: FDA-Public Use
  Company Number: DE-AUROBINDO-AUR-APL-2020-060771

PATIENT
  Age: 68 Year
  Sex: Female
  Weight: 60 kg

DRUGS (4)
  1. GAVISCON DUAL [Suspect]
     Active Substance: CALCIUM CARBONATE\SODIUM ALGINATE\SODIUM BICARBONATE
     Indication: GASTROOESOPHAGEAL REFLUX DISEASE
     Dosage: UNK
     Route: 048
  2. BRIVUDIN ARISTO [Suspect]
     Active Substance: BRIVUDINE
     Indication: HERPES ZOSTER
     Dosage: 125 MILLIGRAM, ONCE A DAY
     Route: 048
     Dates: start: 20201015, end: 20201020
  3. PANTOPRAZOLE 40MG [Suspect]
     Active Substance: PANTOPRAZOLE SODIUM
     Indication: GASTROOESOPHAGEAL REFLUX DISEASE
     Dosage: 40 MILLIGRAM, 1 AS NECESSARY
     Route: 048
  4. EUTHYROX [Suspect]
     Active Substance: LEVOTHYROXINE SODIUM
     Indication: PRODUCT USED FOR UNKNOWN INDICATION
     Dosage: UNK
     Route: 048

REACTIONS (12)
  - Pyrexia [Recovered/Resolved]
  - Malaise [Recovered/Resolved]
  - Nausea [Recovered/Resolved]
  - Dizziness [Recovered/Resolved]
  - Drug-induced liver injury [Recovered/Resolved]
  - Headache [Recovered/Resolved]
  - Abnormal faeces [Recovered/Resolved]
  - Condition aggravated [Recovered/Resolved]
  - Bed rest [Recovered/Resolved]
  - Bone pain [Recovered/Resolved]
  - Decreased appetite [Recovered/Resolved]
  - Chills [Recovered/Resolved]

NARRATIVE: CASE EVENT DATE: 202010
